FAERS Safety Report 14508721 (Version 3)
Quarter: 2018Q4

REPORT INFORMATION
  Report Type: Spontaneous
  Country: RU (occurrence: RU)
  Receive Date: 20180209
  Receipt Date: 20181001
  Transmission Date: 20190204
  Serious: Yes (Hospitalization, Other)
  Sender: FDA-Public Use
  Company Number: RU-ASTRAZENECA-2018SE14283

PATIENT
  Age: 48 Year
  Sex: Male
  Weight: 98 kg

DRUGS (6)
  1. BRILINTA [Suspect]
     Active Substance: TICAGRELOR
     Indication: MYOCARDIAL INFARCTION
     Route: 048
     Dates: start: 201601
  2. ROSUVASTATIN. [Concomitant]
     Active Substance: ROSUVASTATIN
  3. THROMBO ASS [Concomitant]
     Active Substance: ASPIRIN
  4. NOLPAZA [Concomitant]
     Active Substance: PANTOPRAZOLE SODIUM
  5. CONCOR [Concomitant]
     Active Substance: BISOPROLOL FUMARATE
  6. EGIPRES [Concomitant]

REACTIONS (11)
  - Chest pain [Recovered/Resolved]
  - Pancreatitis chronic [Unknown]
  - Type 2 diabetes mellitus [Not Recovered/Not Resolved]
  - Dysbacteriosis [Recovered/Resolved]
  - Angina pectoris [Recovered/Resolved]
  - Weight increased [Not Recovered/Not Resolved]
  - Upper respiratory tract infection [Recovered/Resolved]
  - Gastric ulcer [Recovered/Resolved]
  - Toothache [Recovered/Resolved]
  - Off label use [Not Recovered/Not Resolved]
  - Intentional product use issue [Unknown]

NARRATIVE: CASE EVENT DATE: 201705
